FAERS Safety Report 9316610 (Version 1)
Quarter: 2013Q2

REPORT INFORMATION
  Report Type: Spontaneous
  Country: US (occurrence: US)
  Receive Date: 20130530
  Receipt Date: 20130530
  Transmission Date: 20140414
  Serious: No
  Sender: FDA-Public Use
  Company Number: US-BAYER-2013-066481

PATIENT
  Age: 76 Year
  Sex: Female
  Weight: 58.96 kg

DRUGS (7)
  1. ALEVE TABLET [Suspect]
     Dosage: 1 DF, QD
     Route: 048
     Dates: start: 20130511
  2. ALEVE TABLET [Suspect]
     Dosage: UNK
     Dates: end: 20130518
  3. ALEVE TABLET [Suspect]
     Dosage: UNK
     Dates: end: 20130519
  4. ATORVASTATIN [Concomitant]
  5. LOSARTAN [Concomitant]
  6. PHILLIPS^ COLON HEALTH [Concomitant]
  7. MULTIVITAMINS [Concomitant]

REACTIONS (1)
  - Abdominal pain upper [Not Recovered/Not Resolved]
